FAERS Safety Report 13433177 (Version 3)
Quarter: 2017Q2

REPORT INFORMATION
  Report Type: Report from Study
  Country: US (occurrence: US)
  Receive Date: 20170412
  Receipt Date: 20170627
  Transmission Date: 20170830
  Serious: No
  Sender: FDA-Public Use
  Company Number: US-009507513-1704USA004585

PATIENT
  Age: 22 Year
  Sex: Female

DRUGS (2)
  1. IMPLANON [Suspect]
     Active Substance: ETONOGESTREL
     Dosage: 1 DF, UNK
     Route: 059
     Dates: start: 2017
  2. IMPLANON [Suspect]
     Active Substance: ETONOGESTREL
     Dosage: 1 ROD, UNK; LEFT ARM
     Route: 059
     Dates: start: 20170131, end: 20170410

REACTIONS (2)
  - Implant site pain [Unknown]
  - Migration of implanted drug [Recovered/Resolved]

NARRATIVE: CASE EVENT DATE: 20170403
